FAERS Safety Report 7489889-X (Version None)
Quarter: 2011Q2

REPORT INFORMATION
  Report Type: 
  Country: None (occurrence: None)
  Receive Date: 20110512
  Receipt Date: 20110429
  Transmission Date: 20111010
  Serious: Yes (Hospitalization)
  Sender: FDA-Public Use
  Company Number: 1000020735

PATIENT
  Age: 67 Year
  Sex: Female

DRUGS (7)
  1. BISOPROLOL FUMARATE [Concomitant]
  2. HYDROCHLOROTHIAZIDE [Concomitant]
  3. POTASSIUM (POTASSIUM) (POTASSIUM) [Concomitant]
  4. CITALOPRAM HYDROBROMIDE [Suspect]
     Indication: DEPRESSION
     Dosage: 20 MG (20 MG, 1 IN 1 D), ORAL
     Route: 048
  5. LOSARTAN (LOSARTAN (LSARTAN) [Concomitant]
  6. PROPAFENONE (PROPAFENONE) (PROPRAFENONE) [Concomitant]
  7. FUROSEMIDE [Concomitant]

REACTIONS (1)
  - PARKINSONISM [None]
